FAERS Safety Report 6823365-X (Version None)
Quarter: 2010Q3

REPORT INFORMATION
  Report Type: 
  Country: None (occurrence: None)
  Receive Date: 20100708
  Receipt Date: 20100630
  Transmission Date: 20110219
  Serious: Yes (Other)
  Sender: FDA-Public Use
  Company Number: US-AMGEN-TCS405213

PATIENT
  Sex: Female

DRUGS (6)
  1. ENBREL [Suspect]
     Indication: PSORIASIS
     Route: 058
     Dates: start: 20071201
  2. FOLIC ACID [Concomitant]
     Dates: start: 20080424, end: 20091001
  3. METHOTREXATE [Concomitant]
     Dates: start: 20080424, end: 20091001
  4. SPIRONOLACTONE [Concomitant]
     Dates: start: 20070802
  5. MINOCYCLINE [Concomitant]
     Dates: start: 20091001
  6. CLOBETASOL PROPIONATE [Concomitant]
     Dates: start: 20081001

REACTIONS (5)
  - ANXIETY [None]
  - PARAESTHESIA [None]
  - PSORIASIS [None]
  - UTERINE POLYP [None]
  - VAGINAL HAEMORRHAGE [None]
